FAERS Safety Report 5490942-0 (Version None)
Quarter: 2007Q4

REPORT INFORMATION
  Report Type: 
  Country: None (occurrence: None)
  Receive Date: 20071019
  Receipt Date: 20071018
  Transmission Date: 20080405
  Serious: Yes (Life-Threatening, Hospitalization)
  Sender: FDA-Public Use
  Company Number: BR-ASTRAZENECA-2007UW24215

PATIENT
  Age: 65 Year
  Sex: Female
  Weight: 88 kg

DRUGS (3)
  1. ARIMIDEX [Suspect]
     Indication: BREAST CANCER
     Route: 048
     Dates: start: 20040925
  2. MICARDIS [Concomitant]
     Indication: HYPERTENSION
  3. EUTHYROX [Concomitant]
     Indication: HYPOTHYROIDISM

REACTIONS (5)
  - ARTHRALGIA [None]
  - BRAIN NEOPLASM [None]
  - OEDEMA [None]
  - PAIN [None]
  - VEIN DISCOLOURATION [None]
